FAERS Safety Report 16079346 (Version 1)
Quarter: 2019Q1

REPORT INFORMATION
  Report Type: Spontaneous
  Country: US (occurrence: US)
  Receive Date: 20190315
  Receipt Date: 20190315
  Transmission Date: 20190418
  Serious: No
  Sender: FDA-Public Use
  Company Number: US-TEVA-2019-US-1014598

PATIENT
  Age: 6 Decade
  Sex: Male
  Weight: 109 kg

DRUGS (1)
  1. TESTOSTERONE CYPIONATE INJECTION [Suspect]
     Active Substance: TESTOSTERONE CYPIONATE
     Indication: BLOOD TESTOSTERONE DECREASED
     Route: 065

REACTIONS (1)
  - Libido decreased [Unknown]
